FAERS Safety Report 7450760-0 (Version None)
Quarter: 2011Q2

REPORT INFORMATION
  Report Type: 
  Country: None (occurrence: None)
  Receive Date: 20110502
  Receipt Date: 20110421
  Transmission Date: 20111010
  Serious: Yes (Hospitalization)
  Sender: FDA-Public Use
  Company Number: US-ELI_LILLY_AND_COMPANY-US201104006413

PATIENT
  Sex: Female
  Weight: 66.213 kg

DRUGS (1)
  1. EFFIENT [Suspect]
     Dosage: UNK
     Dates: start: 20101124

REACTIONS (1)
  - CARDIAC FAILURE [None]
